FAERS Safety Report 23501830 (Version 1)
Quarter: 2024Q1

REPORT INFORMATION
  Report Type: Spontaneous
  Country: US (occurrence: US)
  Receive Date: 20240208
  Receipt Date: 20240208
  Transmission Date: 20240410
  Serious: No
  Sender: FDA-Public Use
  Company Number: US-ANIPHARMA-2024-US-005404

PATIENT
  Age: 77 Year
  Sex: Female

DRUGS (3)
  1. CORTICOTROPIN [Suspect]
     Active Substance: CORTICOTROPIN
     Indication: Pemphigoid
     Dosage: 1ML TWICE WEEKLY
     Route: 058
     Dates: start: 20231020
  2. AMLODIPINE [Concomitant]
     Active Substance: AMLODIPINE BESYLATE
     Route: 065
  3. ARTIFICIAL TEARS [Concomitant]
     Route: 065

REACTIONS (3)
  - Weight increased [Not Recovered/Not Resolved]
  - Product use in unapproved indication [Not Recovered/Not Resolved]
  - Contraindicated product administered [Not Recovered/Not Resolved]

NARRATIVE: CASE EVENT DATE: 20231001
